FAERS Safety Report 16656533 (Version 1)
Quarter: 2019Q3

REPORT INFORMATION
  Report Type: Report from Study
  Country: GB (occurrence: GB)
  Receive Date: 20190801
  Receipt Date: 20190801
  Transmission Date: 20191004
  Serious: Yes (Other)
  Sender: FDA-Public Use
  Company Number: GB-JNJFOC-20190740349

PATIENT
  Sex: Male

DRUGS (8)
  1. STELARA [Suspect]
     Active Substance: USTEKINUMAB
     Route: 058
     Dates: start: 20160226, end: 20180521
  2. PARACETAMOL [Concomitant]
     Active Substance: ACETAMINOPHEN
  3. FOLIC ACID. [Concomitant]
     Active Substance: FOLIC ACID
  4. STELARA [Suspect]
     Active Substance: USTEKINUMAB
     Indication: PSORIASIS
     Route: 058
     Dates: start: 20180521
  5. TRAMADOL. [Concomitant]
     Active Substance: TRAMADOL
     Dates: start: 20140829
  6. GABAPENTIN. [Concomitant]
     Active Substance: GABAPENTIN
  7. QUETIAPINE. [Concomitant]
     Active Substance: QUETIAPINE
  8. DIAZEPAM. [Concomitant]
     Active Substance: DIAZEPAM

REACTIONS (1)
  - Penile cancer [Recovered/Resolved]

NARRATIVE: CASE EVENT DATE: 20180803
